FAERS Safety Report 24327700 (Version 1)
Quarter: 2024Q3

REPORT INFORMATION
  Report Type: Spontaneous
  Country: ES (occurrence: ES)
  Receive Date: 20240917
  Receipt Date: 20240917
  Transmission Date: 20241017
  Serious: Yes (Death)
  Sender: PFIZER
  Company Number: ES-ROCHE-3557163

PATIENT
  Age: 51 Year
  Sex: Male
  Weight: 76 kg

DRUGS (7)
  1. AXITINIB [Suspect]
     Active Substance: AXITINIB
     Indication: Metastatic renal cell carcinoma
     Dosage: 5 MG
     Route: 048
     Dates: start: 20240305
  2. TOBEMSTOMIG [Suspect]
     Active Substance: TOBEMSTOMIG
     Indication: Metastatic renal cell carcinoma
     Dosage: 600 MG, EVERY 3 WEEKS
     Route: 042
     Dates: start: 20240305
  3. BEMIPARIN [Concomitant]
     Active Substance: BEMIPARIN
     Indication: Renal vein thrombosis
     Dosage: 12500 IU, 1X/DAY
     Route: 058
     Dates: start: 20240223, end: 20240614
  4. BEMIPARIN [Concomitant]
     Active Substance: BEMIPARIN
     Indication: Vena cava thrombosis
  5. FENTANYL [Concomitant]
     Active Substance: FENTANYL\FENTANYL CITRATE
     Indication: Pain
     Dosage: 100 UG, AS NEEDED
     Route: 048
     Dates: start: 20240223
  6. FENTANYL [Concomitant]
     Active Substance: FENTANYL\FENTANYL CITRATE
     Dosage: 100 UG, AS NEEDED
     Route: 048
     Dates: start: 20240305
  7. FENTANYL [Concomitant]
     Active Substance: FENTANYL\FENTANYL CITRATE
     Indication: Pain
     Dosage: 50 UG EVERY 3 DAYS
     Route: 062
     Dates: start: 20240305

REACTIONS (2)
  - Death [Fatal]
  - Infusion related reaction [Recovered/Resolved]

NARRATIVE: CASE EVENT DATE: 20240415
